FAERS Safety Report 8528723-3 (Version None)
Quarter: 2012Q3

REPORT INFORMATION
  Report Type: 
  Country: None (occurrence: None)
  Receive Date: 20120723
  Receipt Date: 20120713
  Transmission Date: 20120928
  Serious: No
  Sender: FDA-Public Use
  Company Number: US-BIOGENIDEC-2012BI025638

PATIENT
  Sex: Female

DRUGS (3)
  1. AVONEX [Suspect]
     Route: 030
     Dates: start: 20061128
  2. AVONEX [Suspect]
     Indication: MULTIPLE SCLEROSIS
     Route: 030
     Dates: start: 19980801, end: 20041220
  3. AVONEX [Suspect]
     Route: 030
     Dates: start: 20120501

REACTIONS (3)
  - INJECTION SITE LACERATION [None]
  - DRUG DOSE OMISSION [None]
  - WOUND HAEMORRHAGE [None]
